FAERS Safety Report 8290317-5 (Version None)
Quarter: 2012Q2

REPORT INFORMATION
  Report Type: 
  Country: None (occurrence: None)
  Receive Date: 20120417
  Receipt Date: 20120402
  Transmission Date: 20120825
  Serious: Yes (Other)
  Sender: FDA-Public Use
  Company Number: CA-ROCHE-1056603

PATIENT
  Sex: Male
  Weight: 59.928 kg

DRUGS (7)
  1. PREVACID [Concomitant]
  2. TYLENOL ARTHRITIS [Concomitant]
  3. METHOTREXATE [Concomitant]
     Route: 048
  4. FLOMAX [Concomitant]
  5. ACTEMRA [Suspect]
     Indication: RHEUMATOID ARTHRITIS
     Route: 042
     Dates: start: 20100914
  6. SIMVASTATIN [Concomitant]
  7. ASPIRIN [Concomitant]

REACTIONS (1)
  - AORTIC ANEURYSM [None]
